FAERS Safety Report 17846714 (Version 1)
Quarter: 2020Q2

REPORT INFORMATION
  Report Type: Spontaneous
  Country: US (occurrence: US)
  Receive Date: 20200601
  Receipt Date: 20200601
  Transmission Date: 20200714
  Serious: Yes (Hospitalization)
  Sender: FDA-Public Use
  Company Number: None

PATIENT
  Age: 22 Year
  Sex: Female
  Weight: 56.8 kg

DRUGS (2)
  1. LAMOTRIGINE. [Suspect]
     Active Substance: LAMOTRIGINE
     Indication: BIPOLAR DISORDER
     Route: 048
     Dates: start: 20200521, end: 20200530
  2. NAPROXEN. [Concomitant]
     Active Substance: NAPROXEN
     Dates: start: 20200526, end: 20200530

REACTIONS (5)
  - Pyrexia [None]
  - Pain [None]
  - Rash [None]
  - Leukopenia [None]
  - Liver function test increased [None]

NARRATIVE: CASE EVENT DATE: 20200531
